FAERS Safety Report 7992740-2 (Version None)
Quarter: 2011Q4

REPORT INFORMATION
  Report Type: 
  Country: None (occurrence: None)
  Receive Date: 20111219
  Receipt Date: 20110913
  Transmission Date: 20120403
  Serious: No
  Sender: FDA-Public Use
  Company Number: US-ASTRAZENECA-2011SE51485

PATIENT
  Age: 62 Year
  Sex: Female

DRUGS (2)
  1. CRESTOR [Suspect]
     Route: 048
  2. AMIODARONE HCL [Suspect]
     Indication: CARDIAC DISORDER
     Route: 065

REACTIONS (6)
  - ADVERSE DRUG REACTION [None]
  - CONFUSIONAL STATE [None]
  - ASTHENIA [None]
  - DECREASED APPETITE [None]
  - NAUSEA [None]
  - MYALGIA [None]
